FAERS Safety Report 6693332-8 (Version None)
Quarter: 2010Q2

REPORT INFORMATION
  Report Type: 
  Country: None (occurrence: None)
  Receive Date: 20100420
  Receipt Date: 20100407
  Transmission Date: 20101027
  Serious: Yes (Other)
  Sender: FDA-Public Use
  Company Number: 230138M10USA

PATIENT
  Age: 31 Year
  Sex: Female

DRUGS (4)
  1. REBIF [Suspect]
     Indication: MULTIPLE SCLEROSIS
     Dosage: 44 MCG
     Dates: start: 20060101, end: 20100301
  2. BIRTH CONTROL (CONTRACEPTIVES NOS) [Concomitant]
  3. DAYQUIL (BENADRYL COLD AND FLU) [Concomitant]
  4. NYQUIL (MEDINITE [Concomitant]

REACTIONS (5)
  - ABORTION SPONTANEOUS [None]
  - DRUG EXPOSURE DURING PREGNANCY [None]
  - NASOPHARYNGITIS [None]
  - PREGNANCY [None]
  - TREATMENT NONCOMPLIANCE [None]
